FAERS Safety Report 5894600-X (Version None)
Quarter: 2008Q3

REPORT INFORMATION
  Report Type: 
  Country: None (occurrence: None)
  Receive Date: 20080922
  Receipt Date: 20080905
  Transmission Date: 20090109
  Serious: Yes (Hospitalization)
  Sender: FDA-Public Use
  Company Number: DSA_32400_2008

PATIENT
  Sex: Male

DRUGS (2)
  1. LORAZEPAM [Suspect]
     Dosage: (15 MG 1X ORAL)
     Route: 048
     Dates: start: 20080828, end: 20080828
  2. MIRTAZAPINE [Suspect]
     Dosage: (3600 MG 1X ORAL)
     Route: 048
     Dates: start: 20080828, end: 20080828

REACTIONS (7)
  - ATAXIA [None]
  - BLOOD CREATINE PHOSPHOKINASE INCREASED [None]
  - DEHYDRATION [None]
  - DYSARTHRIA [None]
  - HEPATIC FUNCTION ABNORMAL [None]
  - MULTIPLE DRUG OVERDOSE INTENTIONAL [None]
  - SUICIDE ATTEMPT [None]
